FAERS Safety Report 11173955 (Version 2)
Quarter: 2015Q3

REPORT INFORMATION
  Report Type: Report from Study
  Country: NL (occurrence: NL)
  Receive Date: 20150609
  Receipt Date: 20150719
  Transmission Date: 20151125
  Serious: Yes (Other)
  Sender: FDA-Public Use
  Company Number: NL-ABBVIE-15P-114-1403090-00

PATIENT
  Sex: Male
  Weight: 76 kg

DRUGS (1)
  1. LUCRIN DEPOT [Suspect]
     Active Substance: LEUPROLIDE ACETATE
     Indication: PROSTATE CANCER
     Route: 058
     Dates: start: 20130702

REACTIONS (1)
  - Metastases to spine [Unknown]
